FAERS Safety Report 10460582 (Version 2)
Quarter: 2014Q3

REPORT INFORMATION
  Report Type: Report from Study
  Country: NL (occurrence: NL)
  Receive Date: 20140918
  Receipt Date: 20140926
  Transmission Date: 20150326
  Serious: Yes (Life-Threatening, Hospitalization)
  Sender: FDA-Public Use
  Company Number: NL-ROCHE-1460476

PATIENT
  Age: 74 Year
  Sex: Male

DRUGS (9)
  1. TELMISARTAN. [Concomitant]
     Active Substance: TELMISARTAN
     Route: 065
     Dates: start: 20140816
  2. LOSARTAN [Concomitant]
     Active Substance: LOSARTAN
     Route: 065
     Dates: start: 20140816
  3. LOPERAMIDE [Concomitant]
     Active Substance: LOPERAMIDE
     Route: 065
     Dates: start: 20140819, end: 20140822
  4. CAPECITABINE [Suspect]
     Active Substance: CAPECITABINE
     Indication: GASTROOESOPHAGEAL CANCER
     Dosage: FREQUENCY: TWICE DAILY ON DAY 1 TO DAY 14 OF A 3 WEEK CYCLE.  LAST DATE OF TREATMENT 01/AUG/2014
     Route: 048
     Dates: start: 20140711
  5. EPIRUBICIN [Suspect]
     Active Substance: EPIRUBICIN
     Indication: GASTROOESOPHAGEAL CANCER
     Dosage: LAST DATE OF TREATMENT 31/JUL/2014. CUMULATIVE DOSE: 200 MG
     Route: 042
     Dates: start: 20140710
  6. CISPLATIN. [Suspect]
     Active Substance: CISPLATIN
     Indication: GASTROOESOPHAGEAL CANCER
     Dosage: LAST DATE OF TREATMENT 31/JUL/2014. CUMULATIVE DOSE: 240 MG
     Route: 042
     Dates: start: 20140710
  7. NIFEDIPINE. [Concomitant]
     Active Substance: NIFEDIPINE
     Route: 065
     Dates: start: 20140816
  8. HYDROCHLOROTHIAZIDE. [Concomitant]
     Active Substance: HYDROCHLOROTHIAZIDE
     Route: 065
     Dates: start: 20140816
  9. PANTOZOL (NETHERLANDS) [Concomitant]
     Route: 065
     Dates: start: 20140822

REACTIONS (2)
  - Ventricular fibrillation [Recovered/Resolved with Sequelae]
  - Circulatory collapse [Recovered/Resolved]

NARRATIVE: CASE EVENT DATE: 20140816
